FAERS Safety Report 6609915-7 (Version None)
Quarter: 2010Q1

REPORT INFORMATION
  Report Type: 
  Country: None (occurrence: None)
  Receive Date: 20100302
  Receipt Date: 20100225
  Transmission Date: 20100710
  Serious: Yes (Death, Other)
  Sender: FDA-Public Use
  Company Number: PHHY2009IE33546

PATIENT
  Sex: Male

DRUGS (9)
  1. CLOZARIL [Suspect]
     Indication: SCHIZOPHRENIA
     Dosage: 250 MG DAILY
     Route: 048
     Dates: start: 20070320, end: 20090701
  2. DIAZEPAM [Concomitant]
     Indication: ANXIETY
     Dosage: 5 MG, QD, COMMENCED PRE-2007
     Route: 048
  3. DALMANE [Concomitant]
     Indication: SLEEP DISORDER
     Dosage: 30 MG, QD,COMMENCED PRE-2007
     Route: 048
  4. LEXAPRO [Concomitant]
     Indication: DEPRESSION
     Dosage: 25 MG, QD, COMMENCED PRE-2007
     Route: 048
  5. PRAVASTATIN [Concomitant]
  6. LOSEC [Concomitant]
  7. OMACOR [Concomitant]
  8. TAMSULOSIN HCL [Concomitant]
  9. KWELLS [Concomitant]

REACTIONS (7)
  - DYSPHAGIA [None]
  - LUNG NEOPLASM MALIGNANT [None]
  - NEUTROPHIL COUNT INCREASED [None]
  - PAIN [None]
  - PLATELET COUNT INCREASED [None]
  - PSYCHOTIC DISORDER [None]
  - WHITE BLOOD CELL COUNT INCREASED [None]
